FAERS Safety Report 12993369 (Version 1)
Quarter: 2016Q4

REPORT INFORMATION
  Report Type: Spontaneous
  Country: US (occurrence: US)
  Receive Date: 20161202
  Receipt Date: 20161202
  Transmission Date: 20170207
  Serious: No
  Sender: FDA-Public Use
  Company Number: US-APOTEX-2016AP008168

PATIENT
  Age: 72 Year
  Sex: Female

DRUGS (5)
  1. ATENOLOL. [Concomitant]
     Active Substance: ATENOLOL
     Indication: BLOOD PRESSURE MEASUREMENT
     Dosage: UNK, QD
     Route: 048
  2. NICOTINE TRANSDERMAL SYSTEM [Suspect]
     Active Substance: NICOTINE
     Indication: SMOKING CESSATION THERAPY
     Dosage: 1 PATCH EVERY 24 HOURS
     Route: 062
     Dates: start: 20160425, end: 20160425
  3. LISINOPRIL. [Concomitant]
     Active Substance: LISINOPRIL
     Indication: BLOOD PRESSURE MEASUREMENT
     Dosage: UNK, QD
     Route: 048
  4. VERAPAMIL                          /00014302/ [Concomitant]
     Active Substance: VERAPAMIL HYDROCHLORIDE
     Indication: BLOOD PRESSURE MEASUREMENT
     Dosage: UNK, QD
     Route: 048
  5. ASPIRIN                            /00002701/ [Concomitant]
     Active Substance: ASPIRIN
     Indication: CARDIOVASCULAR EVENT PROPHYLAXIS
     Dosage: LOW DOSE
     Route: 048

REACTIONS (4)
  - Palpitations [Recovered/Resolved]
  - Accidental underdose [Recovered/Resolved]
  - Nervousness [Recovered/Resolved]
  - Product label confusion [Recovered/Resolved]

NARRATIVE: CASE EVENT DATE: 20160325
